FAERS Safety Report 7230207-X (Version None)
Quarter: 2011Q1

REPORT INFORMATION
  Report Type: 
  Country: None (occurrence: None)
  Receive Date: 20110118
  Receipt Date: 20110114
  Transmission Date: 20110831
  Serious: No
  Sender: FDA-Public Use
  Company Number: US-JNJFOC-20110103858

PATIENT
  Age: 46 Year
  Sex: Female
  Weight: 45.36 kg

DRUGS (2)
  1. PERCOCET [Concomitant]
     Indication: BREAKTHROUGH PAIN
     Route: 048
  2. DURAGESIC-50 [Suspect]
     Indication: FIBROMYALGIA
     Route: 062

REACTIONS (5)
  - DRUG DISPENSING ERROR [None]
  - PRODUCT QUALITY ISSUE [None]
  - PAIN [None]
  - INAPPROPRIATE SCHEDULE OF DRUG ADMINISTRATION [None]
  - EXPIRED DRUG ADMINISTERED [None]
